FAERS Safety Report 17671068 (Version 2)
Quarter: 2020Q2

REPORT INFORMATION
  Report Type: Report from Study
  Country: DE (occurrence: DE)
  Receive Date: 20200415
  Receipt Date: 20200421
  Transmission Date: 20200713
  Serious: Yes (Other)
  Sender: FDA-Public Use
  Company Number: DE-B.I. PHARMACEUTICALS,INC./RIDGEFIELD-2020-BI-018921

PATIENT
  Age: 73 Year
  Sex: Female
  Weight: 63 kg

DRUGS (3)
  1. AFATINIB [Suspect]
     Active Substance: AFATINIB
     Indication: NON-SMALL CELL LUNG CANCER
     Route: 065
     Dates: start: 20180104, end: 20180208
  2. AFATINIB [Suspect]
     Active Substance: AFATINIB
     Route: 065
  3. AFATINIB [Suspect]
     Active Substance: AFATINIB
     Route: 065
     Dates: start: 20180209, end: 20180820

REACTIONS (5)
  - Ichthyosis [Recovered/Resolved]
  - Ichthyosis [Recovered/Resolved]
  - Diarrhoea [Recovered/Resolved]
  - Ichthyosis [Recovered/Resolved]
  - Nail disorder [Recovered/Resolved]

NARRATIVE: CASE EVENT DATE: 20180208
